FAERS Safety Report 7490191-0 (Version None)
Quarter: 2011Q2

REPORT INFORMATION
  Report Type: 
  Country: None (occurrence: None)
  Receive Date: 20110512
  Receipt Date: 20110503
  Transmission Date: 20111010
  Serious: Yes (Other)
  Sender: FDA-Public Use
  Company Number: ADR-2011228024

PATIENT
  Age: 27 Year
  Sex: Female

DRUGS (7)
  1. LAMOTRIGINE [Concomitant]
  2. TIAGABINE HCL [Concomitant]
  3. ZONISAMIDE [Suspect]
     Indication: CONVULSION
     Dosage: 100 MG BID; ORAL
     Route: 048
  4. TOPIRAMATE [Concomitant]
  5. PHENYTOIN [Concomitant]
  6. LEVETIRACETAM [Concomitant]
  7. CARBAMAZEPINE [Concomitant]

REACTIONS (1)
  - DRUG INEFFECTIVE [None]
